FAERS Safety Report 18614009 (Version 1)
Quarter: 2020Q4

REPORT INFORMATION
  Report Type: Spontaneous
  Country: US (occurrence: US)
  Receive Date: 20201214
  Receipt Date: 20201214
  Transmission Date: 20210114
  Serious: No
  Sender: FDA-Public Use
  Company Number: US-NOVOPROD-734029

PATIENT
  Age: 58 Year
  Sex: Female

DRUGS (2)
  1. LEVEMIR [Suspect]
     Active Substance: INSULIN DETEMIR
     Indication: TYPE 2 DIABETES MELLITUS
     Dosage: IN THE AM + PM
     Route: 058
     Dates: start: 2012
  2. LEVEMIR [Suspect]
     Active Substance: INSULIN DETEMIR
     Dosage: DOSE INCREASED
     Route: 058

REACTIONS (6)
  - Weight increased [Unknown]
  - Blood glucose increased [Recovered/Resolved]
  - Bone disorder [Unknown]
  - Fatigue [Unknown]
  - Osteoarthritis [Unknown]
  - Back pain [Unknown]

NARRATIVE: CASE EVENT DATE: 2010
